FAERS Safety Report 17266978 (Version 2)
Quarter: 2020Q1

REPORT INFORMATION
  Report Type: Spontaneous
  Country: BE (occurrence: BE)
  Receive Date: 20200114
  Receipt Date: 20200311
  Transmission Date: 20200409
  Serious: Yes (Hospitalization, Other)
  Sender: FDA-Public Use
  Company Number: BE-PFIZER INC-2020012344

PATIENT
  Age: 37 Year
  Sex: Female
  Weight: 53 kg

DRUGS (5)
  1. PACLITAXEL. [Suspect]
     Active Substance: PACLITAXEL
     Indication: BREAST NEOPLASM
     Dosage: 80 MG/M2, CYCLIC (DAY 1,8,15 AND 22)-120.8 MG
     Route: 042
     Dates: start: 20191016, end: 20200115
  2. LEVOCETIRIZINE [Concomitant]
     Active Substance: LEVOCETIRIZINE
     Indication: PREMEDICATION
     Dosage: 5 MG, UNK
     Route: 048
     Dates: start: 20191016
  3. LITICAN [Concomitant]
     Active Substance: ALIZAPRIDE HYDROCHLORIDE
     Indication: PREMEDICATION
     Dosage: 50 MG, UNK
     Route: 041
     Dates: start: 20191016
  4. ZANTAC [Concomitant]
     Active Substance: RANITIDINE HYDROCHLORIDE
     Indication: PREMEDICATION
     Dosage: 50 MG, UNK
     Route: 042
     Dates: start: 20191016
  5. AACIDEXAM [Concomitant]
     Active Substance: DEXAMETHASONE
     Indication: PREMEDICATION
     Dosage: 20 MG, UNK
     Route: 042
     Dates: start: 20191016

REACTIONS (3)
  - Respiratory disorder [Unknown]
  - Shock [Unknown]
  - Chest pain [Unknown]

NARRATIVE: CASE EVENT DATE: 20191016
